FAERS Safety Report 5402267-X (Version None)
Quarter: 2007Q3

REPORT INFORMATION
  Report Type: 
  Country: None (occurrence: None)
  Receive Date: 20070801
  Receipt Date: 20070723
  Transmission Date: 20080115
  Serious: Yes (Death, Hospitalization)
  Sender: FDA-Public Use
  Company Number: GR-JNJFOC-20070705237

PATIENT
  Age: 50 Year
  Sex: Male
  Weight: 130 kg

DRUGS (3)
  1. RISPERDAL [Suspect]
     Indication: PSYCHOTIC DISORDER
     Route: 048
  2. EFFEXOR [Concomitant]
     Route: 048
  3. TAVOR [Concomitant]
     Route: 048

REACTIONS (4)
  - HYPERPYREXIA [None]
  - LOSS OF CONSCIOUSNESS [None]
  - MULTI-ORGAN FAILURE [None]
  - PARTIAL SEIZURES [None]
